FAERS Safety Report 9563765 (Version 1)
Quarter: 2013Q3

REPORT INFORMATION
  Report Type: Spontaneous
  Country: US (occurrence: None)
  Receive Date: 20130926
  Receipt Date: 20130926
  Transmission Date: 20140515
  Serious: Yes (Other)
  Sender: FDA-Public Use
  Company Number: US-DEXPHARM-20130655

PATIENT
  Age: 18 Year
  Sex: Female
  Weight: 90.7 kg

DRUGS (2)
  1. OMEPRAZOLE [Suspect]
     Indication: INTENTIONAL OVERDOSE
     Dosage: UNKOWN AMOUNT (AT LEAST 180-200 MG), SINGLE, ORAL
     Route: 048
     Dates: start: 20130913, end: 20130913
  2. IBUPROFEN [Suspect]
     Indication: INTENTIONAL OVERDOSE
     Dosage: 200 MG 6 TIMES A DAY, ORAL
     Route: 048
     Dates: start: 20130913, end: 20130913

REACTIONS (4)
  - Intentional overdose [None]
  - Headache [None]
  - Chest pain [None]
  - Oropharyngeal pain [None]
